FAERS Safety Report 4832505-3 (Version None)
Quarter: 2005Q4

REPORT INFORMATION
  Report Type: 
  Country: None (occurrence: None)
  Receive Date: 20051121
  Receipt Date: 20051109
  Transmission Date: 20060501
  Serious: Yes (Hospitalization, Disabling, Other)
  Sender: FDA-Public Use
  Company Number: US-JNJFOC-20051104333

PATIENT
  Sex: Female
  Weight: 81.65 kg

DRUGS (7)
  1. IBUPROFEN [Suspect]
     Indication: INFLAMMATION
     Route: 048
  2. ESTRADIOL INJ [Concomitant]
  3. LASIX [Concomitant]
  4. HYDROCODEINE [Concomitant]
  5. VALIUM [Concomitant]
     Indication: DEATH OF CHILD
  6. POTASSIUM [Concomitant]
  7. ATENOLOL [Concomitant]
     Indication: BLOOD PRESSURE ABNORMAL

REACTIONS (6)
  - DIABETES MELLITUS [None]
  - GASTRIC DISORDER [None]
  - HERNIA [None]
  - MYOCARDIAL INFARCTION [None]
  - NEUROPATHY [None]
  - ROTATOR CUFF REPAIR [None]
